FAERS Safety Report 4420929-8 (Version None)
Quarter: 2004Q3

REPORT INFORMATION
  Report Type: 
  Country: None (occurrence: None)
  Receive Date: 20040809
  Receipt Date: 20040728
  Transmission Date: 20050211
  Serious: Yes (Hospitalization)
  Sender: FDA-Public Use
  Company Number: JP-JNJFOC-20040704083

PATIENT
  Sex: Male
  Weight: 52 kg

DRUGS (5)
  1. REMICADE [Suspect]
     Route: 042
  2. REMICADE [Suspect]
     Indication: CROHN'S DISEASE
     Route: 042
  3. PENTASA [Concomitant]
  4. AZATHIOPRINE [Concomitant]
  5. TPN [Concomitant]

REACTIONS (9)
  - BLOOD CREATINE PHOSPHOKINASE INCREASED [None]
  - DIARRHOEA [None]
  - DYSPNOEA EXERTIONAL [None]
  - MELAENA [None]
  - MYALGIA [None]
  - MYOSITIS [None]
  - OEDEMA PERIPHERAL [None]
  - PAIN [None]
  - WHITE BLOOD CELL COUNT INCREASED [None]
